FAERS Safety Report 8021586-4 (Version None)
Quarter: 2012Q1

REPORT INFORMATION
  Report Type: 
  Country: None (occurrence: None)
  Receive Date: 20120104
  Receipt Date: 20111227
  Transmission Date: 20120608
  Serious: Yes (Other)
  Sender: FDA-Public Use
  Company Number: US-BAYER-2011-013853

PATIENT
  Age: 38 Year
  Sex: Female
  Weight: 78.458 kg

DRUGS (8)
  1. MAXALT [Concomitant]
     Indication: MIGRAINE
     Dosage: UNK
     Dates: start: 20070101
  2. MULTI-VITAMINS [Concomitant]
  3. VERAPAMIL [Concomitant]
     Dosage: UNK
     Dates: start: 20071001
  4. WELLBUTRIN [Concomitant]
  5. YAZ [Suspect]
     Indication: ACNE
  6. BUPROPION HCL [Concomitant]
     Indication: DEPRESSION
     Dosage: UNK
     Dates: start: 20010101
  7. YAZ [Suspect]
     Indication: CONTRACEPTION
     Dosage: UNK
     Route: 048
     Dates: start: 20080501, end: 20090501
  8. ACETAMINOPHEN [Concomitant]
     Indication: ANALGESIC THERAPY
     Dosage: UNK UNK, PRN

REACTIONS (8)
  - DIZZINESS [None]
  - CHOLECYSTITIS ACUTE [None]
  - EMOTIONAL DISTRESS [None]
  - ANXIETY [None]
  - HYPERHIDROSIS [None]
  - PAIN [None]
  - ABDOMINAL PAIN [None]
  - NAUSEA [None]
